FAERS Safety Report 5037684-3 (Version None)
Quarter: 2006Q2

REPORT INFORMATION
  Report Type: 
  Country: None (occurrence: None)
  Receive Date: 20060623
  Receipt Date: 20060612
  Transmission Date: 20061013
  Serious: Yes (Death, Other)
  Sender: FDA-Public Use
  Company Number: MEDI-0002701

PATIENT
  Sex: Female

DRUGS (1)
  1. ETHYOL [Suspect]

REACTIONS (1)
  - BONE MARROW FAILURE [None]
